FAERS Safety Report 9551428 (Version 1)
Quarter: 2013Q3

REPORT INFORMATION
  Report Type: Spontaneous
  Country: US (occurrence: None)
  Receive Date: 20130724
  Receipt Date: 20130724
  Transmission Date: 20140515
  Serious: Yes (Hospitalization)
  Sender: FDA-Public Use
  Company Number: PHEH2012US011279

PATIENT
  Age: 70 Year
  Sex: Female

DRUGS (1)
  1. GLEEVEC (IMATINIB) TABLET, 100MG [Suspect]
     Indication: CHRONIC MYELOID LEUKAEMIA
     Dosage: 300 MG, UNK, ORAL
     Route: 048
     Dates: start: 20120113

REACTIONS (2)
  - Enteritis [None]
  - Abdominal pain [None]
